FAERS Safety Report 21200713 (Version 1)
Quarter: 2022Q3

REPORT INFORMATION
  Report Type: Spontaneous
  Country: FR (occurrence: FR)
  Receive Date: 20220811
  Receipt Date: 20220811
  Transmission Date: 20221027
  Serious: Yes (Hospitalization, Other)
  Sender: FDA-Public Use
  Company Number: None

PATIENT
  Age: 49 Year
  Sex: Male
  Weight: 70.4 kg

DRUGS (9)
  1. AMOXICILLIN\CLAVULANIC ACID [Suspect]
     Active Substance: AMOXICILLIN\CLAVULANIC ACID
     Indication: Localised infection
     Dosage: 2-2-2
     Route: 048
     Dates: start: 20220617, end: 20220622
  2. RISPERIDONE [Suspect]
     Active Substance: RISPERIDONE
     Indication: Schizophrenia
     Dosage: 0-0-2
     Route: 048
     Dates: end: 20220701
  3. GABAPENTIN [Suspect]
     Active Substance: GABAPENTIN
     Indication: Neuralgia
     Dosage: 1-0-1
     Route: 048
     Dates: start: 20220620, end: 20220627
  4. MELATONIN [Suspect]
     Active Substance: MELATONIN
     Indication: Insomnia
     Dosage: 1 DOSAGE FORM, QD,EXTENDED RELEASE TABLET
     Route: 048
     Dates: start: 20220623, end: 20220630
  5. LOVENOX [Suspect]
     Active Substance: ENOXAPARIN SODIUM
     Indication: Embolism
     Dosage: EVENING, ANTI-XA/0.4 ML, INJECTABLE SOLUTION IN CARTRIDGE
     Route: 058
     Dates: start: 20220615, end: 20220627
  6. CHLORPROMAZINE [Suspect]
     Active Substance: CHLORPROMAZINE
     Indication: Schizophrenia
     Dosage: 2-2-2
     Route: 048
     Dates: end: 20220701
  7. DOLIPRANE [Suspect]
     Active Substance: ACETAMINOPHEN
     Indication: Pain
     Dosage: 2-2-2-2 IF IN PAIN
     Route: 048
     Dates: end: 20220627
  8. HUMALOG [Concomitant]
     Active Substance: INSULIN LISPRO
     Dosage: UNK,KWIKPEN, SOLUTION INJECTABLE
     Route: 065
  9. INSULIN GLARGINE [Concomitant]
     Active Substance: INSULIN GLARGINE
     Dosage: EVENING,SOLUTION FOR INJECTION IN PRE-FILLED PEN
     Route: 048

REACTIONS (2)
  - Hepatic cytolysis [Recovering/Resolving]
  - Condition aggravated [Recovering/Resolving]

NARRATIVE: CASE EVENT DATE: 20220621
